FAERS Safety Report 18259625 (Version 3)
Quarter: 2024Q1

REPORT INFORMATION
  Report Type: Spontaneous
  Country: BE (occurrence: BE)
  Receive Date: 20200912
  Receipt Date: 20240208
  Transmission Date: 20240410
  Serious: Yes (Other)
  Sender: FDA-Public Use
  Company Number: BE-TAKEDA-2020TUS037698

PATIENT
  Age: 20 Year
  Sex: Female

DRUGS (1)
  1. ADCETRIS [Suspect]
     Active Substance: BRENTUXIMAB VEDOTIN
     Indication: Hodgkin^s disease refractory
     Dosage: UNK
     Route: 065
     Dates: start: 20200529, end: 20200803

REACTIONS (2)
  - Hodgkin^s disease [Unknown]
  - Rash pruritic [Not Recovered/Not Resolved]
